FAERS Safety Report 6899432-1 (Version None)
Quarter: 2010Q3

REPORT INFORMATION
  Report Type: 
  Country: None (occurrence: None)
  Receive Date: 20100803
  Receipt Date: 20090717
  Transmission Date: 20110219
  Serious: No
  Sender: FDA-Public Use
  Company Number: US-PFIZER INC-2007060771

PATIENT
  Sex: Female
  Weight: 72.6 kg

DRUGS (12)
  1. LYRICA [Suspect]
     Indication: FIBROMYALGIA
     Dosage: UNK
     Route: 048
  2. ZOLOFT [Concomitant]
     Dosage: UNK
     Dates: start: 19970101
  3. CLONAZEPAM [Concomitant]
     Indication: ANXIETY
     Dosage: UNK
     Dates: start: 19970101
  4. PROTONIX [Concomitant]
     Indication: DYSPEPSIA
     Dosage: UNK
     Dates: start: 19970101
  5. PLENDIL [Concomitant]
     Indication: HYPERTENSION
     Dosage: UNK
     Dates: start: 19970101
  6. VICODIN ES [Concomitant]
     Indication: PAIN IN JAW
     Dosage: UNK
     Dates: start: 19970101
  7. LIPITOR [Concomitant]
     Indication: BLOOD CHOLESTEROL
     Dosage: UNK
     Dates: start: 19970101
  8. EVISTA [Concomitant]
     Dosage: UNK
  9. RELAFEN [Concomitant]
     Indication: ARTHRITIS
  10. RELAFEN [Concomitant]
     Indication: FIBROMYALGIA
  11. ACETAMINOPHEN [Concomitant]
     Dosage: UNK
  12. HYDROCODONE [Concomitant]
     Dosage: UNK

REACTIONS (11)
  - ASTHENIA [None]
  - DIZZINESS [None]
  - DRUG INEFFECTIVE [None]
  - DRUG INTOLERANCE [None]
  - FEELING ABNORMAL [None]
  - HYPERVENTILATION [None]
  - JOINT SWELLING [None]
  - OEDEMA PERIPHERAL [None]
  - PAIN [None]
  - PANIC REACTION [None]
  - SOMNOLENCE [None]
